FAERS Safety Report 16644669 (Version 1)
Quarter: 2019Q3

REPORT INFORMATION
  Report Type: Spontaneous
  Country: US (occurrence: US)
  Receive Date: 20190729
  Receipt Date: 20190729
  Transmission Date: 20191004
  Serious: No
  Sender: FDA-Public Use
  Company Number: US-SA-2019SA200190

PATIENT
  Age: 18 Year
  Sex: Female

DRUGS (20)
  1. MONTELUKAST [Concomitant]
     Active Substance: MONTELUKAST SODIUM
  2. PREDNISOLONE. [Concomitant]
     Active Substance: PREDNISOLONE
  3. PREDNISONE. [Concomitant]
     Active Substance: PREDNISONE
  4. PREVACID [Concomitant]
     Active Substance: LANSOPRAZOLE
  5. PROTOPIC [Concomitant]
     Active Substance: TACROLIMUS
  6. EPIPEN [Concomitant]
     Active Substance: EPINEPHRINE
  7. ESZOPICLONE. [Concomitant]
     Active Substance: ESZOPICLONE
  8. SMZ-TMP [Concomitant]
     Active Substance: SULFAMETHOXAZOLE\TRIMETHOPRIM
  9. VERAPAMIL [Concomitant]
     Active Substance: VERAPAMIL HYDROCHLORIDE
  10. XOPENEX [Concomitant]
     Active Substance: LEVALBUTEROL HYDROCHLORIDE
  11. CEPHALEXIN [CEFALEXIN] [Concomitant]
     Active Substance: CEPHALEXIN
  12. SINGULAIR [Concomitant]
     Active Substance: MONTELUKAST SODIUM
  13. CEFADROXIL. [Concomitant]
     Active Substance: CEFADROXIL
  14. HYDROXYZINE HCL [Concomitant]
     Active Substance: HYDROXYZINE HYDROCHLORIDE
  15. PULMICORT TURBUHALER [Concomitant]
     Active Substance: BUDESONIDE
  16. DUPIXENT [Suspect]
     Active Substance: DUPILUMAB
     Indication: NEURODERMATITIS
     Dosage: 300 MG, QOW
     Route: 058
     Dates: start: 20190323
  17. BUPROPION HCL [Concomitant]
     Active Substance: BUPROPION HYDROCHLORIDE
  18. HYALURONATE SODIUM [Concomitant]
     Active Substance: HYALURONATE SODIUM
  19. SERTRALINE [Concomitant]
     Active Substance: SERTRALINE HYDROCHLORIDE
  20. TRIAMCINOLONE [Concomitant]
     Active Substance: TRIAMCINOLONE

REACTIONS (2)
  - Neurodermatitis [Not Recovered/Not Resolved]
  - Therapeutic response decreased [Not Recovered/Not Resolved]

NARRATIVE: CASE EVENT DATE: 2019
